FAERS Safety Report 6759743-7 (Version None)
Quarter: 2010Q2

REPORT INFORMATION
  Report Type: 
  Country: None (occurrence: None)
  Receive Date: 20100608
  Receipt Date: 20100608
  Transmission Date: 20101027
  Serious: Yes (Other)
  Sender: FDA-Public Use
  Company Number: US-JNJFOC-20100501888

PATIENT
  Sex: Female
  Weight: 47.17 kg

DRUGS (3)
  1. LEVAQUIN [Suspect]
     Indication: PNEUMONIA
     Route: 042
  2. LEVAQUIN [Suspect]
     Route: 048
  3. ASPIRIN [Concomitant]
     Route: 065

REACTIONS (8)
  - ASTHENIA [None]
  - DECREASED APPETITE [None]
  - MALAISE [None]
  - OESOPHAGEAL SPASM [None]
  - RASH [None]
  - RASH ERYTHEMATOUS [None]
  - URTICARIA [None]
  - WEIGHT DECREASED [None]
